FAERS Safety Report 6696294-2 (Version None)
Quarter: 2010Q2

REPORT INFORMATION
  Report Type: 
  Country: None (occurrence: None)
  Receive Date: 20100419
  Receipt Date: 20090626
  Transmission Date: 20101027
  Serious: No
  Sender: FDA-Public Use
  Company Number: 2009-00413

PATIENT
  Age: 57 Year
  Sex: Female
  Weight: 113.3993 kg

DRUGS (2)
  1. ZICAM COLD REMEDY GEL SWABS [Suspect]
     Dosage: QID - 5 DOSES
     Dates: start: 20090610, end: 20090610
  2. SYNTHROID [Concomitant]

REACTIONS (1)
  - ANOSMIA [None]
